FAERS Safety Report 16034361 (Version 1)
Quarter: 2019Q1

REPORT INFORMATION
  Report Type: Spontaneous
  Country: US (occurrence: US)
  Receive Date: 20190205
  Receipt Date: 20190205
  Transmission Date: 20190418
  Serious: Yes (Hospitalization)
  Sender: FDA-Public Use
  Company Number: None

PATIENT
  Age: 53 Year
  Sex: Male

DRUGS (2)
  1. DEXAMETHASONE 4MG [Suspect]
     Active Substance: DEXAMETHASONE
     Indication: PLASMA CELL MYELOMA
     Dosage: 20MG DAYS 1,2,4,5,8,9,11,12; BY MOUTH?
     Route: 048
     Dates: start: 20190128
  2. VELCADE [Suspect]
     Active Substance: BORTEZOMIB
     Indication: PLASMA CELL MYELOMA
     Dosage: 2.6MG DAYS 1,4,8 AND 11; INTRAVENOUSLY?
     Route: 042
     Dates: start: 20190128

REACTIONS (1)
  - Device related infection [None]

NARRATIVE: CASE EVENT DATE: 20190202
